FAERS Safety Report 4821164-1 (Version None)
Quarter: 2005Q4

REPORT INFORMATION
  Report Type: 
  Country: None (occurrence: None)
  Receive Date: 20051102
  Receipt Date: 20051019
  Transmission Date: 20060501
  Serious: Yes (Other)
  Sender: FDA-Public Use
  Company Number: USA0510111319

PATIENT
  Sex: Female

DRUGS (1)
  1. CYMBALTA [Suspect]
     Dates: start: 20050301

REACTIONS (2)
  - GENERAL PHYSICAL CONDITION ABNORMAL [None]
  - HEPATOSPLENOMEGALY [None]
